FAERS Safety Report 8612626-X (Version None)
Quarter: 2012Q3

REPORT INFORMATION
  Report Type: 
  Country: None (occurrence: None)
  Receive Date: 20120822
  Receipt Date: 20110913
  Transmission Date: 20120928
  Serious: No
  Sender: FDA-Public Use
  Company Number: US-ASTRAZENECA-2011SE55125

PATIENT
  Age: 79 Year
  Sex: Male

DRUGS (2)
  1. VITAMIN B-12 [Concomitant]
  2. SYMBICORT [Suspect]
     Route: 055

REACTIONS (1)
  - PAIN [None]
